FAERS Safety Report 6543166-X (Version None)
Quarter: 2010Q1

REPORT INFORMATION
  Report Type: 
  Country: None (occurrence: None)
  Receive Date: 20100120
  Receipt Date: 20100114
  Transmission Date: 20100710
  Serious: Yes (Other)
  Sender: FDA-Public Use
  Company Number: CHPA2010US00853

PATIENT
  Age: 65 Year
  Sex: Female
  Weight: 63.492 kg

DRUGS (2)
  1. THERAFLU NIGHTTIME SEVERE COLD + COUGH (NCH) [Suspect]
     Dosage: UNK, UNK
     Route: 048
     Dates: start: 20100101, end: 20100101
  2. THERAFLU DAYTIME SEVERE COLD + COUGH [Suspect]
     Dosage: UNK, UNK
     Route: 048
     Dates: start: 20100107, end: 20100107

REACTIONS (5)
  - ASTHENIA [None]
  - DEHYDRATION [None]
  - DIZZINESS [None]
  - GASTROINTESTINAL HAEMORRHAGE [None]
  - HAEMATOCHEZIA [None]
